FAERS Safety Report 10997448 (Version 1)
Quarter: 2015Q2

REPORT INFORMATION
  Report Type: Spontaneous
  Country: US (occurrence: None)
  Receive Date: 20150402
  Receipt Date: 20150402
  Transmission Date: 20150821
  Serious: Yes (Other)
  Sender: FDA-Public Use
  Company Number: 201412098

PATIENT
  Age: 50 Year
  Sex: Male
  Weight: 81.65 kg

DRUGS (1)
  1. XIAFLEX [Suspect]
     Active Substance: COLLAGENASE CLOSTRIDIUM HISTOLYTICUM
     Indication: DUPUYTREN^S CONTRACTURE
     Dates: start: 20131217, end: 20131217

REACTIONS (1)
  - Tendon rupture [None]

NARRATIVE: CASE EVENT DATE: 20140402
